FAERS Safety Report 21076792 (Version 1)
Quarter: 2022Q3

REPORT INFORMATION
  Report Type: Spontaneous
  Country: US (occurrence: None)
  Receive Date: 20220713
  Receipt Date: 20220713
  Transmission Date: 20221026
  Serious: No
  Sender: FDA-Public Use
  Company Number: None

PATIENT
  Age: 34 Year
  Sex: Male
  Weight: 66.15 kg

DRUGS (3)
  1. BUSPIRONE [Suspect]
     Active Substance: BUSPIRONE HYDROCHLORIDE
     Indication: Anxiety
     Dosage: FREQUENCY : TWICE A DAY;?
     Route: 048
     Dates: start: 20220527, end: 20220704
  2. FINASTERIDE [Concomitant]
     Active Substance: FINASTERIDE
  3. BUPROPION [Concomitant]
     Active Substance: BUPROPION

REACTIONS (3)
  - Somnolence [None]
  - Balance disorder [None]
  - Cognitive disorder [None]
